FAERS Safety Report 6671644-1 (Version None)
Quarter: 2010Q2

REPORT INFORMATION
  Report Type: 
  Country: None (occurrence: None)
  Receive Date: 20100406
  Receipt Date: 20100406
  Transmission Date: 20101027
  Serious: No
  Sender: FDA-Public Use
  Company Number: None

PATIENT
  Age: 10 Year
  Sex: Male
  Weight: 43.0917 kg

DRUGS (2)
  1. SINGULAIR [Suspect]
     Indication: ASTHMA
     Dosage: 5MG DAILY PO
     Route: 048
     Dates: start: 20090301, end: 20100404
  2. SINGULAIR [Suspect]
     Indication: MULTIPLE ALLERGIES
     Dosage: 5MG DAILY PO
     Route: 048
     Dates: start: 20090301, end: 20100404

REACTIONS (2)
  - DEPRESSION [None]
  - EMOTIONAL DISORDER [None]
